FAERS Safety Report 15482494 (Version 1)
Quarter: 2018Q4

REPORT INFORMATION
  Report Type: Spontaneous
  Country: FR (occurrence: FR)
  Receive Date: 20181010
  Receipt Date: 20181010
  Transmission Date: 20190205
  Serious: Yes (Hospitalization)
  Sender: FDA-Public Use
  Company Number: FR-ASTRAZENECA-2018SF29500

PATIENT
  Age: 57 Year
  Sex: Male
  Weight: 195 kg

DRUGS (8)
  1. TRAMADOL. [Concomitant]
     Active Substance: TRAMADOL
     Indication: PAIN
     Dosage: 50 MG SI BESOIN (7 PRISES PENDANT LA P???RIODE)
  2. PARACETAMOL [Concomitant]
     Active Substance: ACETAMINOPHEN
     Indication: PAIN
     Dosage: 1 G SI BESOIN (7 PRISES PENDANT LA P???RIODE)1.0G INTERMITTENT
     Route: 048
     Dates: start: 20180802, end: 20180811
  3. ASPEGIC (ACETYLSALICYLATE LYSINE, GLYCINE) [Concomitant]
     Active Substance: ASPIRIN DL-LYSINE\GLYCINE
     Indication: MYOCARDIAL ISCHAEMIA
     Dosage: 250.0MG ONCE/SINGLE ADMINISTRATION
     Route: 042
     Dates: start: 20180815, end: 20180815
  4. AUGMENTIN [Concomitant]
     Active Substance: AMOXICILLIN\CLAVULANATE POTASSIUM
     Indication: LUNG DISORDER
     Dosage: 2G/200 MG : 3 FOIS PAR JOUR
     Route: 042
     Dates: start: 20180802, end: 20180807
  5. ENOXAPARIN SODIUM. [Concomitant]
     Active Substance: ENOXAPARIN SODIUM
     Indication: PROPHYLAXIS
     Dosage: LE MATIN
     Route: 058
     Dates: start: 20180804, end: 20180815
  6. SALBUTAMOL [Concomitant]
     Active Substance: ALBUTEROL
     Indication: PRODUCT USED FOR UNKNOWN INDICATION
     Route: 055
     Dates: start: 20180804, end: 20180818
  7. ENOXACIN [Concomitant]
     Active Substance: ENOXACIN
     Indication: PROPHYLAXIS
     Dosage: 22 500 UI LE SOIR DU 15/0818 ET LE MATIN ET SOIR LE 16/08/18
     Route: 058
     Dates: start: 20180815, end: 20180816
  8. BRILIQUE [Suspect]
     Active Substance: TICAGRELOR
     Indication: MYOCARDIAL ISCHAEMIA
     Dosage: 180.0MG ONCE/SINGLE ADMINISTRATION
     Route: 048
     Dates: start: 20180815, end: 20180815

REACTIONS (1)
  - Paroxysmal atrioventricular block [Recovered/Resolved]

NARRATIVE: CASE EVENT DATE: 20180815
